FAERS Safety Report 5202864-0 (Version None)
Quarter: 2006Q4

REPORT INFORMATION
  Report Type: 
  Country: None (occurrence: None)
  Receive Date: 20061016
  Receipt Date: 20060914
  Transmission Date: 20070319
  Serious: No
  Sender: FDA-Public Use
  Company Number: 2006SP003302

PATIENT
  Age: 57 Year
  Sex: Female

DRUGS (2)
  1. LUNESTA [Suspect]
     Dosage: ORAL
     Route: 048
     Dates: start: 20060101
  2. SIMVASTATIN [Concomitant]

REACTIONS (1)
  - ALOPECIA [None]
